FAERS Safety Report 6578336-8 (Version None)
Quarter: 2010Q1

REPORT INFORMATION
  Report Type: 
  Country: None (occurrence: None)
  Receive Date: 20100211
  Receipt Date: 20091211
  Transmission Date: 20100710
  Serious: Yes (Hospitalization)
  Sender: FDA-Public Use
  Company Number: JP-SANOFI-AVENTIS-2009SA000835

PATIENT
  Age: 67 Year
  Sex: Male
  Weight: 65 kg

DRUGS (8)
  1. PLAVIX [Suspect]
     Indication: ANGINA UNSTABLE
     Route: 048
     Dates: start: 20090817, end: 20090817
  2. PLAVIX [Suspect]
     Route: 048
     Dates: start: 20090818
  3. ASPIRIN [Concomitant]
     Indication: ANGINA UNSTABLE
     Route: 048
     Dates: start: 20090817, end: 20090817
  4. ASPIRIN [Concomitant]
     Route: 048
     Dates: start: 20090818
  5. HEPARIN [Concomitant]
     Indication: ANGINA UNSTABLE
     Dosage: DOSE:7000 UNIT(S)
     Route: 041
     Dates: start: 20090817, end: 20090817
  6. LOCHOL [Concomitant]
     Indication: HYPERLIPIDAEMIA
     Route: 048
     Dates: start: 20090818
  7. BEPRICOR [Concomitant]
     Indication: ATRIAL FIBRILLATION
     Route: 048
     Dates: start: 20090818, end: 20090824
  8. WARFARIN SODIUM [Concomitant]
     Indication: ATRIAL FIBRILLATION
     Route: 048
     Dates: start: 20090818, end: 20090830

REACTIONS (3)
  - NEUTROPHIL COUNT INCREASED [None]
  - PUNCTURE SITE INFECTION [None]
  - WHITE BLOOD CELL COUNT INCREASED [None]
